FAERS Safety Report 9319254 (Version 1)
Quarter: 2013Q2

REPORT INFORMATION
  Report Type: Spontaneous
  Country: US (occurrence: US)
  Receive Date: 20130530
  Receipt Date: 20130530
  Transmission Date: 20140414
  Serious: No
  Sender: FDA-Public Use
  Company Number: US-VIIV HEALTHCARE LIMITED-A0981395A

PATIENT
  Age: 1 Day
  Sex: 0

DRUGS (1)
  1. RETROVIR [Suspect]
     Dosage: 58MG SINGLE DOSE
     Route: 048
     Dates: start: 20120615, end: 20120615

REACTIONS (2)
  - Overdose [Unknown]
  - Drug administration error [Unknown]
